FAERS Safety Report 12783166 (Version 1)
Quarter: 2016Q3

REPORT INFORMATION
  Report Type: Spontaneous
  Country: US (occurrence: US)
  Receive Date: 20160927
  Receipt Date: 20160927
  Transmission Date: 20161109
  Serious: Yes (Hospitalization)
  Sender: FDA-Public Use
  Company Number: US-BEH-2011028952

PATIENT
  Age: 31 Year
  Sex: Female
  Weight: 85 kg

DRUGS (2)
  1. STIMATE [Suspect]
     Active Substance: DESMOPRESSIN ACETATE
     Indication: VON WILLEBRAND^S DISEASE
     Dosage: 2 PUFFS 2-5 TIMES/WEEK PRE-PREGNANCY
     Route: 045
  2. STIMATE [Suspect]
     Active Substance: DESMOPRESSIN ACETATE
     Dosage: DOSE DECREASED TO 3 TIMES/WEEK FROM 5 TIMES/WEEK AT 34TH GESTATION
     Route: 045

REACTIONS (4)
  - No adverse event [Recovered/Resolved]
  - Arrested labour [None]
  - Exposure during pregnancy [Recovered/Resolved]
  - Caesarean section [None]
